FAERS Safety Report 9542743 (Version 1)
Quarter: 2013Q3

REPORT INFORMATION
  Report Type: Spontaneous
  Country: US (occurrence: US)
  Receive Date: 20130923
  Receipt Date: 20130923
  Transmission Date: 20140515
  Serious: No
  Sender: FDA-Public Use
  Company Number: US-PFIZER INC-2013272654

PATIENT
  Age: 64 Year
  Sex: Female
  Weight: 49.89 kg

DRUGS (4)
  1. ZOLOFT [Suspect]
     Indication: DEPRESSION
     Dosage: 200 MG, 1X/DAY
     Route: 048
  2. COUMADINE [Suspect]
     Indication: ANTICOAGULANT THERAPY
     Dosage: UNK
  3. SYNTHROID [Concomitant]
     Indication: THYROID DISORDER
     Dosage: 100 UG, 1X/DAY
     Route: 048
  4. AMBIEN [Concomitant]
     Indication: SLEEP DISORDER
     Dosage: UNK, 1X/DAY
     Route: 048

REACTIONS (2)
  - Drug level fluctuating [Recovered/Resolved]
  - Memory impairment [Unknown]
